FAERS Safety Report 8695756 (Version 2)
Quarter: 2013Q4

REPORT INFORMATION
  Report Type: Spontaneous
  Country: US (occurrence: US)
  Receive Date: 20120731
  Receipt Date: 20131101
  Transmission Date: 20140711
  Serious: No
  Sender: FDA-Public Use
  Company Number: US-009507513-1205USA00089

PATIENT
  Sex: Male

DRUGS (5)
  1. ZOCOR [Suspect]
     Dosage: 40 MG, QD
     Route: 048
  2. LIPITOR [Suspect]
     Dosage: 20 MG, QD
     Route: 048
  3. DOXAZOSIN MESYLATE [Concomitant]
     Dosage: 2 MG, QD
  4. TRICOR (ADENOSINE) [Concomitant]
     Dosage: 145 MG, QD
     Route: 048
  5. ASPIRIN [Concomitant]
     Dosage: 385 MG, QD

REACTIONS (3)
  - Dizziness postural [Unknown]
  - Fatigue [Unknown]
  - Laziness [Unknown]
